FAERS Safety Report 10567736 (Version 1)
Quarter: 2014Q4

REPORT INFORMATION
  Report Type: Spontaneous
  Country: US (occurrence: None)
  Receive Date: 20141105
  Receipt Date: 20141105
  Transmission Date: 20150529
  Serious: Yes (Disabling)
  Sender: FDA-Public Use
  Company Number: None

PATIENT
  Age: 40 Year
  Sex: Female
  Weight: 58.51 kg

DRUGS (4)
  1. FLORINEF ACETATE [Suspect]
     Active Substance: FLUDROCORTISONE ACETATE
     Indication: MALAISE
     Route: 048
     Dates: start: 197212
  2. ZANTAC [Concomitant]
     Active Substance: RANITIDINE HYDROCHLORIDE
  3. FLUDROCORTISONE [Concomitant]
     Active Substance: FLUDROCORTISONE
  4. TYLENOL [Concomitant]
     Active Substance: ACETAMINOPHEN

REACTIONS (7)
  - Product substitution issue [None]
  - Addison^s disease [None]
  - Condition aggravated [None]
  - Gait disturbance [None]
  - Impaired work ability [None]
  - Product quality issue [None]
  - Back pain [None]

NARRATIVE: CASE EVENT DATE: 20140315
